FAERS Safety Report 13971172 (Version 1)
Quarter: 2017Q3

REPORT INFORMATION
  Report Type: Spontaneous
  Country: US (occurrence: US)
  Receive Date: 20170914
  Receipt Date: 20170914
  Transmission Date: 20171128
  Serious: No
  Sender: FDA-Public Use
  Company Number: US-ASTELLAS-2016US043325

PATIENT
  Sex: Male

DRUGS (3)
  1. XTANDI [Suspect]
     Active Substance: ENZALUTAMIDE
     Indication: PROSTATE CANCER
     Dosage: 160 MG, ONCE DAILY AT BEDTIME
     Route: 048
     Dates: start: 20161007
  2. PLAVIX [Concomitant]
     Active Substance: CLOPIDOGREL BISULFATE
     Indication: PRODUCT USED FOR UNKNOWN INDICATION
     Dosage: UNK UNK, AS NEEDED NOT ON DAILY BASIS
     Route: 065
  3. XTANDI [Suspect]
     Active Substance: ENZALUTAMIDE
     Route: 048
     Dates: end: 201703

REACTIONS (11)
  - Depression [Unknown]
  - Disorientation [Unknown]
  - Balance disorder [Unknown]
  - Insomnia [Unknown]
  - Fall [Unknown]
  - Feeling abnormal [Unknown]
  - Amnesia [Unknown]
  - Dizziness [Unknown]
  - Anal incontinence [Unknown]
  - Pollakiuria [Unknown]
  - Urinary incontinence [Unknown]
